FAERS Safety Report 7888037-1 (Version None)
Quarter: 2011Q4

REPORT INFORMATION
  Report Type: 
  Country: None (occurrence: None)
  Receive Date: 20111103
  Receipt Date: 20111011
  Transmission Date: 20120403
  Serious: Yes (Hospitalization)
  Sender: FDA-Public Use
  Company Number: CA-JNJFOC-20111012698

PATIENT
  Sex: Female
  Weight: 64 kg

DRUGS (1)
  1. REMICADE [Suspect]
     Indication: CROHN'S DISEASE
     Route: 042
     Dates: start: 20100501

REACTIONS (6)
  - POST PROCEDURAL PNEUMONIA [None]
  - ANAEMIA POSTOPERATIVE [None]
  - PELVIC ABSCESS [None]
  - POSTOPERATIVE WOUND INFECTION [None]
  - GASTROINTESTINAL FISTULA [None]
  - INTESTINAL RESECTION [None]
